FAERS Safety Report 21652221 (Version 1)
Quarter: 2022Q4

REPORT INFORMATION
  Report Type: Spontaneous
  Country: US (occurrence: None)
  Receive Date: 20221125
  Receipt Date: 20221125
  Transmission Date: 20230112
  Serious: No
  Sender: FDA-Public Use
  Company Number: None

PATIENT
  Age: 66 Year
  Sex: Male
  Weight: 116 kg

DRUGS (1)
  1. DEFINITY [Suspect]
     Active Substance: PERFLUTREN
     Indication: Diagnostic procedure
     Dosage: FREQUENCY : AS NEEDED;?
     Route: 040
     Dates: start: 20221125, end: 20221125

REACTIONS (1)
  - Back pain [None]

NARRATIVE: CASE EVENT DATE: 20221125
